FAERS Safety Report 14216363 (Version 4)
Quarter: 2017Q4

REPORT INFORMATION
  Report Type: Spontaneous
  Country: CA (occurrence: CA)
  Receive Date: 20171122
  Receipt Date: 20171227
  Transmission Date: 20180321
  Serious: Yes (Hospitalization)
  Sender: FDA-Public Use
  Company Number: CA-BIOMARINAP-CA-2017-116102

PATIENT
  Age: 11 Year
  Sex: Female

DRUGS (15)
  1. ALDURAZYME [Suspect]
     Active Substance: LARONIDASE
     Dosage: 0.82 MG/KG, QW
     Route: 041
     Dates: start: 20170728
  2. ALDURAZYME [Suspect]
     Active Substance: LARONIDASE
     Dosage: 0.82 MG/KG, QW
     Route: 041
     Dates: start: 20171012, end: 20171012
  3. WARFARIN [Concomitant]
     Active Substance: WARFARIN
     Indication: PRODUCT USED FOR UNKNOWN INDICATION
  4. ALDURAZYME [Suspect]
     Active Substance: LARONIDASE
     Dosage: 0.82 MG/KG, QW
     Route: 041
     Dates: start: 20171026
  5. ALDURAZYME [Suspect]
     Active Substance: LARONIDASE
     Dosage: 14.5 MG, QW
     Route: 041
     Dates: start: 2017
  6. DIPHENHYDRAMINE. [Concomitant]
     Active Substance: DIPHENHYDRAMINE
     Indication: PREMEDICATION
  7. BENADRYL [Concomitant]
     Active Substance: DIPHENHYDRAMINE HYDROCHLORIDE
     Indication: PREMEDICATION
  8. COUMADIN [Concomitant]
     Active Substance: WARFARIN SODIUM
     Indication: PRODUCT USED FOR UNKNOWN INDICATION
  9. ASA [Concomitant]
     Active Substance: ASPIRIN
     Indication: PRODUCT USED FOR UNKNOWN INDICATION
  10. PREDNISONE. [Concomitant]
     Active Substance: PREDNISONE
     Indication: PREMEDICATION
  11. ALDURAZYME [Suspect]
     Active Substance: LARONIDASE
     Indication: MUCOPOLYSACCHARIDOSIS I
     Dosage: 0.58 MG/KG, QW
     Route: 041
     Dates: start: 20110509
  12. IBUPROFEN. [Concomitant]
     Active Substance: IBUPROFEN
     Indication: PREMEDICATION
  13. LASIX [Concomitant]
     Active Substance: FUROSEMIDE
     Indication: PRODUCT USED FOR UNKNOWN INDICATION
  14. EMLA [Concomitant]
     Active Substance: LIDOCAINE\PRILOCAINE
     Indication: PREMEDICATION
  15. TYLENOL [Concomitant]
     Active Substance: ACETAMINOPHEN
     Indication: PREMEDICATION

REACTIONS (7)
  - Pain in extremity [Unknown]
  - Tremor [Unknown]
  - Surgery [Unknown]
  - Infusion related reaction [Recovered/Resolved]
  - Cardiac disorder [Unknown]
  - Body temperature increased [Recovered/Resolved]
  - Disease progression [Unknown]
